FAERS Safety Report 17368564 (Version 2)
Quarter: 2020Q1

REPORT INFORMATION
  Report Type: Spontaneous
  Country: DE (occurrence: DE)
  Receive Date: 20200204
  Receipt Date: 20200224
  Transmission Date: 20200409
  Serious: Yes (Life-Threatening, Hospitalization)
  Sender: FDA-Public Use
  Company Number: NVSC2020DE028597

PATIENT
  Age: 98 Year
  Sex: Female
  Weight: 47 kg

DRUGS (1)
  1. AZITHROMYCIN 500 - 1 A PHARMA [Suspect]
     Active Substance: AZITHROMYCIN
     Indication: PNEUMONIA
     Dosage: 500 MG, QD (3 TAGE LANG 1 X T?GL.)
     Route: 065
     Dates: start: 20191022, end: 20191023

REACTIONS (4)
  - Vomiting [Recovered/Resolved]
  - Dyspnoea [Recovered/Resolved]
  - Choking sensation [Recovered/Resolved]
  - Dyspnoea [Recovered/Resolved]

NARRATIVE: CASE EVENT DATE: 20191022
